FAERS Safety Report 8521175 (Version 2)
Quarter: 2013Q2

REPORT INFORMATION
  Report Type: Spontaneous
  Country: US (occurrence: US)
  Receive Date: 20120419
  Receipt Date: 20130418
  Transmission Date: 20140414
  Serious: Yes (Other)
  Sender: FDA-Public Use
  Company Number: US-PFIZER INC-2012093606

PATIENT
  Age: 48 Year
  Sex: 0

DRUGS (2)
  1. NEURONTIN [Suspect]
     Dosage: 400 MG, UNK
  2. NEURONTIN [Suspect]
     Dosage: 600 MG, 2X/DAY
     Route: 048

REACTIONS (2)
  - Bipolar II disorder [Unknown]
  - Bipolar I disorder [Unknown]
